FAERS Safety Report 25126580 (Version 1)
Quarter: 2025Q1

REPORT INFORMATION
  Report Type: Spontaneous
  Country: GR (occurrence: GR)
  Receive Date: 20250327
  Receipt Date: 20250327
  Transmission Date: 20250409
  Serious: Yes (Other)
  Sender: ABBVIE
  Company Number: GR-RECORDATI-2025001820

PATIENT
  Age: 76 Year
  Sex: Female

DRUGS (2)
  1. CARIPRAZINE [Suspect]
     Active Substance: CARIPRAZINE
     Indication: Depression
     Route: 048
     Dates: start: 202503, end: 202503
  2. PAROXETINE HYDROCHLORIDE [Concomitant]
     Active Substance: PAROXETINE HYDROCHLORIDE
     Indication: Depression
     Route: 065

REACTIONS (3)
  - Hallucination [Unknown]
  - Off label use [Recovered/Resolved]
  - Extrapyramidal disorder [Unknown]

NARRATIVE: CASE EVENT DATE: 20250301
